FAERS Safety Report 10149404 (Version 1)
Quarter: 2014Q2

REPORT INFORMATION
  Report Type: Spontaneous
  Country: US (occurrence: None)
  Receive Date: 20140430
  Receipt Date: 20140430
  Transmission Date: 20141212
  Serious: Yes (Hospitalization)
  Sender: FDA-Public Use
  Company Number: FK201401490

PATIENT
  Age: 51 Year
  Sex: Male
  Weight: 99 kg

DRUGS (5)
  1. FLUOROURACIL [Suspect]
     Indication: ADENOCARCINOMA OF COLON
     Route: 042
     Dates: start: 20110712
  2. OXALIPLATIN [Suspect]
     Indication: ADENOCARCINOMA OF COLON
     Dates: start: 20110712
  3. LEUCOVORIN [Suspect]
     Indication: ADENOCARCINOMA OF COLON
     Route: 042
     Dates: start: 20110712
  4. CELECOXIB [Suspect]
     Indication: ADENOCARCINOMA OF COLON
     Route: 048
     Dates: start: 20110712
  5. DEXAMETHASONE [Suspect]
     Indication: PROPHYLAXIS OF NAUSEA AND VOMITING

REACTIONS (2)
  - Mania [None]
  - Agitation [None]
